FAERS Safety Report 21435697 (Version 1)
Quarter: 2022Q4

REPORT INFORMATION
  Report Type: Spontaneous
  Country: US (occurrence: US)
  Receive Date: 20221010
  Receipt Date: 20221010
  Transmission Date: 20230113
  Serious: Yes (Other)
  Sender: FDA-Public Use
  Company Number: US-GLAXOSMITHKLINE-US2022AMR141878

PATIENT

DRUGS (1)
  1. BENLYSTA [Suspect]
     Active Substance: BELIMUMAB
     Indication: Systemic lupus erythematosus
     Dosage: UNK, WE
     Route: 058
     Dates: start: 2022

REACTIONS (3)
  - Lupus nephritis [Unknown]
  - Condition aggravated [Unknown]
  - Proteinuria [Unknown]

NARRATIVE: CASE EVENT DATE: 20220101
